FAERS Safety Report 8396357-X (Version None)
Quarter: 2012Q2

REPORT INFORMATION
  Report Type: 
  Country: None (occurrence: None)
  Receive Date: 20120530
  Receipt Date: 20120521
  Transmission Date: 20120825
  Serious: Yes (Death, Other)
  Sender: FDA-Public Use
  Company Number: US-MERCK-1205USA03962

PATIENT
  Age: 41 Year
  Sex: Male

DRUGS (5)
  1. MARAVIROC [Suspect]
     Indication: HIV INFECTION
     Route: 065
  2. ISENTRESS [Suspect]
     Indication: HIV INFECTION
     Route: 048
  3. ETRAVIRINE [Concomitant]
     Route: 065
  4. LAMIVUDINE [Concomitant]
     Route: 065
  5. ENFUVIRTIDE [Concomitant]
     Route: 065

REACTIONS (9)
  - TOXICITY TO VARIOUS AGENTS [None]
  - PNEUMOCOCCAL BACTERAEMIA [None]
  - RENAL FAILURE [None]
  - THROMBOCYTOPENIA [None]
  - DEATH [None]
  - COAGULOPATHY [None]
  - INTUSSUSCEPTION [None]
  - ANAEMIA [None]
  - HEPATIC FUNCTION ABNORMAL [None]
